FAERS Safety Report 13406131 (Version 1)
Quarter: 2017Q2

REPORT INFORMATION
  Report Type: Spontaneous
  Country: AU (occurrence: AU)
  Receive Date: 20170405
  Receipt Date: 20170405
  Transmission Date: 20170830
  Serious: Yes (Other)
  Sender: FDA-Public Use
  Company Number: AU-APOTEX-2017AP009247

PATIENT
  Age: 76 Year
  Sex: Male

DRUGS (3)
  1. FUROSEMIDE. [Suspect]
     Active Substance: FUROSEMIDE
     Indication: STRESS CARDIOMYOPATHY
     Dosage: 1 DF, QD
     Route: 048
  2. APO-PERINDOPRIL [Suspect]
     Active Substance: PERINDOPRIL
     Indication: PRODUCT USED FOR UNKNOWN INDICATION
     Dosage: UNK
     Route: 065
  3. FUROSEMIDE. [Suspect]
     Active Substance: FUROSEMIDE
     Dosage: 2 DF, QD
     Route: 048

REACTIONS (12)
  - Testicular swelling [Unknown]
  - Swelling [Unknown]
  - Renal disorder [Unknown]
  - Vascular rupture [Unknown]
  - Liver disorder [Unknown]
  - Haemorrhage [Unknown]
  - Atrial fibrillation [Unknown]
  - Pulmonary oedema [Unknown]
  - Urinary retention [Unknown]
  - Wound [Unknown]
  - Bladder disorder [Unknown]
  - Face oedema [Unknown]
